FAERS Safety Report 4915087-7 (Version None)
Quarter: 2006Q1

REPORT INFORMATION
  Report Type: 
  Country: None (occurrence: None)
  Receive Date: 20060217
  Receipt Date: 20060209
  Transmission Date: 20060701
  Serious: Yes (Hospitalization)
  Sender: FDA-Public Use
  Company Number: FR-BRISTOL-MYERS SQUIBB COMPANY-13279534

PATIENT
  Age: 67 Year
  Sex: Male

DRUGS (6)
  1. COAPROVEL TABS 150MG/12.5MG [Suspect]
     Route: 048
     Dates: end: 20060123
  2. ACTONEL [Concomitant]
  3. STILNOX [Concomitant]
  4. LINDILANE [Concomitant]
     Dates: end: 20060101
  5. TARDYFERON [Concomitant]
  6. OROCAL D3 [Concomitant]

REACTIONS (2)
  - CEREBELLAR SYNDROME [None]
  - HYPONATRAEMIA [None]
